FAERS Safety Report 9539476 (Version 4)
Quarter: 2014Q4

REPORT INFORMATION
  Report Type: Spontaneous
  Country: DK (occurrence: None)
  Receive Date: 20130917
  Receipt Date: 20141031
  Transmission Date: 20150529
  Serious: Yes (Congenital Anomaly)
  Sender: FDA-Public Use
  Company Number: FK201304188

PATIENT
  Sex: Male
  Weight: 2.87 kg

DRUGS (1)
  1. ONDANSETRON. [Suspect]
     Active Substance: ONDANSETRON
     Indication: NAUSEA
     Route: 064
     Dates: start: 20110217

REACTIONS (4)
  - Hypospadias [None]
  - Maternal drugs affecting foetus [None]
  - Cryptorchism [None]
  - Atrioventricular septal defect [None]

NARRATIVE: CASE EVENT DATE: 20110516
